FAERS Safety Report 19294576 (Version 1)
Quarter: 2021Q2

REPORT INFORMATION
  Report Type: Spontaneous
  Country: HR (occurrence: HR)
  Receive Date: 20210524
  Receipt Date: 20210524
  Transmission Date: 20210717
  Serious: Yes (Hospitalization, Other)
  Sender: FDA-Public Use
  Company Number: HR-ACCORD-225856

PATIENT
  Age: 46 Year
  Sex: Female

DRUGS (1)
  1. DOCETAXEL. [Suspect]
     Active Substance: DOCETAXEL
     Indication: BREAST CANCER
     Dosage: 160MG/8ML, 110 MG
     Route: 042
     Dates: start: 20210222

REACTIONS (7)
  - Pain [Recovered/Resolved]
  - Febrile neutropenia [Recovering/Resolving]
  - Normocytic anaemia [Unknown]
  - Labia enlarged [Unknown]
  - Phlebitis [Unknown]
  - Palpitations [Unknown]
  - Mobility decreased [Unknown]

NARRATIVE: CASE EVENT DATE: 2021
